FAERS Safety Report 10693518 (Version 3)
Quarter: 2018Q3

REPORT INFORMATION
  Report Type: Spontaneous
  Country: US (occurrence: US)
  Receive Date: 20150106
  Receipt Date: 20180905
  Transmission Date: 20181010
  Serious: Yes (Hospitalization)
  Sender: FDA-Public Use
  Company Number: US-APOTEX-2014AP006396

PATIENT
  Age: 8 Year
  Sex: Female

DRUGS (2)
  1. RISPERIDONE. [Suspect]
     Active Substance: RISPERIDONE
     Indication: PSYCHOTIC DISORDER
     Dosage: 0.5 MG, BID
     Route: 065
  2. RISPERIDONE. [Suspect]
     Active Substance: RISPERIDONE
     Dosage: 0.5MG TWICE A DAY AND 0.75MG AT BED TIME
     Route: 065

REACTIONS (3)
  - Drug effect decreased [Unknown]
  - Hyperprolactinaemia [Unknown]
  - Precocious puberty [Unknown]
